FAERS Safety Report 6011024-5 (Version None)
Quarter: 2008Q4

REPORT INFORMATION
  Report Type: 
  Country: None (occurrence: None)
  Receive Date: 20081218
  Receipt Date: 20081210
  Transmission Date: 20090506
  Serious: Yes (Death, Other)
  Sender: FDA-Public Use
  Company Number: BR-PFIZER INC-2008073006

PATIENT

DRUGS (1)
  1. DETRUSITOL LA [Suspect]
     Route: 048
     Dates: start: 20070801

REACTIONS (1)
  - DEATH [None]
